FAERS Safety Report 9125975 (Version 1)
Quarter: 2013Q1

REPORT INFORMATION
  Report Type: Spontaneous
  Country: BR (occurrence: BR)
  Receive Date: 20130228
  Receipt Date: 20130228
  Transmission Date: 20140127
  Serious: Yes (Other)
  Sender: FDA-Public Use
  Company Number: BR-AMGEN-BRASP2013013722

PATIENT
  Age: 23 Year
  Sex: Male
  Weight: 71 kg

DRUGS (3)
  1. ENBREL [Suspect]
     Indication: RHEUMATOID ARTHRITIS
     Dosage: 25 MG, 2X/WEEK
     Dates: start: 2008
  2. ENBREL [Suspect]
     Dosage: 50 MG, QWK
  3. ENBREL [Suspect]
     Dosage: 25 MG, 1X/WEEK

REACTIONS (1)
  - Weight increased [Unknown]
